FAERS Safety Report 4748616-7 (Version None)
Quarter: 2005Q3

REPORT INFORMATION
  Report Type: 
  Country: None (occurrence: None)
  Receive Date: 20050819
  Receipt Date: 20050810
  Transmission Date: 20060218
  Serious: Yes (Hospitalization)
  Sender: FDA-Public Use
  Company Number: CN-ABBOTT-05P-035-0308090-00

PATIENT
  Age: 9 Year
  Sex: Male

DRUGS (3)
  1. DEPAKENE [Suspect]
     Indication: EPILEPSY
     Route: 048
     Dates: start: 20040110, end: 20050728
  2. DEPAKENE [Suspect]
     Route: 048
     Dates: start: 20050729
  3. TOPIRAMATE [Concomitant]
     Indication: EPILEPSY
     Route: 048
     Dates: start: 20040701

REACTIONS (5)
  - ANTICONVULSANT DRUG LEVEL INCREASED [None]
  - BLOOD CREATINE PHOSPHOKINASE INCREASED [None]
  - MYALGIA [None]
  - PYREXIA [None]
  - RASH [None]
